FAERS Safety Report 6346362-X (Version None)
Quarter: 2009Q3

REPORT INFORMATION
  Report Type: 
  Country: None (occurrence: None)
  Receive Date: 20090909
  Receipt Date: 20090831
  Transmission Date: 20100115
  Serious: Yes (Hospitalization)
  Sender: FDA-Public Use
  Company Number: US-ELI_LILLY_AND_COMPANY-US200908006765

PATIENT
  Sex: Male
  Weight: 126.8 kg

DRUGS (6)
  1. BYETTA [Suspect]
     Indication: TYPE 2 DIABETES MELLITUS
     Dosage: 5 UG, 2/D
     Route: 058
     Dates: start: 20080101, end: 20080101
  2. BYETTA [Suspect]
     Dosage: 10 UG, 2/D
     Route: 058
     Dates: start: 20080101, end: 20090501
  3. BYETTA [Suspect]
     Dosage: 10 UG, 2/D
     Route: 058
     Dates: start: 20090824
  4. NOVOLOG [Concomitant]
     Indication: TYPE 2 DIABETES MELLITUS
     Dosage: 3 U, 2/D
     Route: 058
  5. NOVOLOG [Concomitant]
     Dosage: UNK, AS NEEDED
  6. LANTUS [Concomitant]
     Indication: TYPE 2 DIABETES MELLITUS
     Dosage: 50 U, EACH EVENING

REACTIONS (6)
  - FEELING DRUNK [None]
  - LOCALISED INFECTION [None]
  - OEDEMA PERIPHERAL [None]
  - OFF LABEL USE [None]
  - SKIN DISCOLOURATION [None]
  - VISION BLURRED [None]
